FAERS Safety Report 5021154-2 (Version None)
Quarter: 2006Q2

REPORT INFORMATION
  Report Type: 
  Country: None (occurrence: None)
  Receive Date: 20060608
  Receipt Date: 20060529
  Transmission Date: 20061013
  Serious: Yes (Hospitalization)
  Sender: FDA-Public Use
  Company Number: 2006SE03069

PATIENT
  Age: 83 Year
  Sex: Female

DRUGS (4)
  1. ATACAND [Suspect]
     Indication: CARDIAC FAILURE
     Route: 048
     Dates: end: 20060329
  2. INSULATARD NPH HUMAN [Concomitant]
  3. IMPUGAN [Concomitant]
     Route: 048
  4. NOVOMIX [Concomitant]

REACTIONS (2)
  - ACCIDENTAL OVERDOSE [None]
  - DIZZINESS [None]
